FAERS Safety Report 5167942-3 (Version None)
Quarter: 2006Q4

REPORT INFORMATION
  Report Type: 
  Country: None (occurrence: None)
  Receive Date: 20061208
  Receipt Date: 20051031
  Transmission Date: 20070319
  Serious: No
  Sender: FDA-Public Use
  Company Number: US-GLAXOSMITHKLINE-A0580286A

PATIENT
  Sex: Male

DRUGS (5)
  1. AVANDAMET [Suspect]
     Route: 048
  2. DILTIAZEM HCL [Concomitant]
  3. LEVOTHYROXIN [Concomitant]
  4. LOVASTATIN [Concomitant]
  5. MIRADOL [Concomitant]

REACTIONS (2)
  - BALANCE DISORDER [None]
  - BLOOD GLUCOSE INCREASED [None]
